FAERS Safety Report 23797733 (Version 1)
Quarter: 2024Q2

REPORT INFORMATION
  Report Type: Spontaneous
  Country: CA (occurrence: CA)
  Receive Date: 20240430
  Receipt Date: 20240430
  Transmission Date: 20240716
  Serious: Yes (Hospitalization, Disabling)
  Sender: FDA-Public Use
  Company Number: CA-SANDOZ-SDZ2024CA043530

PATIENT
  Age: 80 Year
  Sex: Male
  Weight: 93.18 kg

DRUGS (1)
  1. LANSOPRAZOLE [Suspect]
     Active Substance: LANSOPRAZOLE
     Indication: Gastrooesophageal reflux disease
     Dosage: UNK, QD
     Route: 048

REACTIONS (2)
  - Joint dislocation [Not Recovered/Not Resolved]
  - Chest pain [Not Recovered/Not Resolved]
